FAERS Safety Report 7236411-9 (Version None)
Quarter: 2011Q1

REPORT INFORMATION
  Report Type: 
  Country: None (occurrence: None)
  Receive Date: 20110120
  Receipt Date: 20110117
  Transmission Date: 20110831
  Serious: Yes (Death, Hospitalization, Disabling, Other)
  Sender: FDA-Public Use
  Company Number: GB-PFIZER INC-2010148949

PATIENT
  Age: 51 Year
  Sex: Male

DRUGS (1)
  1. SUNITINIB MALATE [Suspect]
     Indication: DISEASE PROGRESSION
     Dosage: 50 MG, 1X/DAY
     Route: 048
     Dates: start: 20091201, end: 20100901

REACTIONS (6)
  - CONFUSIONAL STATE [None]
  - NEOPLASM MALIGNANT [None]
  - HYPERTENSION [None]
  - DEATH [None]
  - DISEASE PROGRESSION [None]
  - LEUKOENCEPHALOPATHY [None]
